FAERS Safety Report 17564710 (Version 1)
Quarter: 2020Q1

REPORT INFORMATION
  Report Type: Spontaneous
  Country: US (occurrence: US)
  Receive Date: 20200320
  Receipt Date: 20200320
  Transmission Date: 20200409
  Serious: Yes (Other)
  Sender: FDA-Public Use
  Company Number: US-SUN PHARMACEUTICAL INDUSTRIES LTD-2020R1-240842

PATIENT
  Age: 55 Year
  Sex: Male

DRUGS (3)
  1. TRIAMCINOLONE [Suspect]
     Active Substance: TRIAMCINOLONE
     Indication: PUSTULAR PSORIASIS
     Route: 065
  2. ADALIMUMAB [Suspect]
     Active Substance: ADALIMUMAB
     Indication: PUSTULAR PSORIASIS
     Route: 065
  3. MYCOPHENOLATE MOFETIL. [Suspect]
     Active Substance: MYCOPHENOLATE MOFETIL
     Indication: PUSTULAR PSORIASIS
     Route: 065

REACTIONS (6)
  - Atrophy [Unknown]
  - Self-medication [Unknown]
  - Erythema [Unknown]
  - Skin exfoliation [Unknown]
  - Drug ineffective [Unknown]
  - Skin wrinkling [Unknown]
